FAERS Safety Report 12563223 (Version 5)
Quarter: 2017Q3

REPORT INFORMATION
  Report Type: Spontaneous
  Country: CN (occurrence: CN)
  Receive Date: 20160715
  Receipt Date: 20170831
  Transmission Date: 20171127
  Serious: Yes (Other)
  Sender: FDA-Public Use
  Company Number: CN-PFIZER INC-2016323107

PATIENT
  Age: 71 Year
  Sex: Female
  Weight: 48 kg

DRUGS (12)
  1. CORDARONE [Suspect]
     Active Substance: AMIODARONE HYDROCHLORIDE
     Dosage: 0.2 G, 3X/DAY
     Route: 065
  2. ASPIRIN. [Concomitant]
     Active Substance: ASPIRIN
     Indication: PLATELET AGGREGATION INHIBITION
     Dosage: 90 MG, 2X/DAY
  3. ATORVASTATIN CALCIUM. [Interacting]
     Active Substance: ATORVASTATIN CALCIUM
     Dosage: 20 MG, 1X/DAY (AT NIGHT))
  4. TICAGRELOR. [Interacting]
     Active Substance: TICAGRELOR
     Indication: ANTICOAGULANT THERAPY
  5. METOPROLOL. [Concomitant]
     Active Substance: METOPROLOL
     Indication: HEART RATE INCREASED
     Dosage: 12.5 MG, 2X/DAY
  6. HYDROCHLOROTHIAZIDE. [Concomitant]
     Active Substance: HYDROCHLOROTHIAZIDE
     Indication: DIURETIC THERAPY
     Dosage: 12.5 MG, 1X/DAY
  7. TICAGRELOR. [Interacting]
     Active Substance: TICAGRELOR
     Indication: PLATELET AGGREGATION INHIBITION
     Dosage: 90 MG, 2X/DAY
  8. METOPROLOL. [Concomitant]
     Active Substance: METOPROLOL
     Dosage: 23.75 MG, 1X/DAY
  9. ATORVASTATIN CALCIUM. [Interacting]
     Active Substance: ATORVASTATIN CALCIUM
     Indication: HYPERLIPIDAEMIA
     Dosage: 40 MG, 1X/DAY (AT NIGHT)
  10. TICAGRELOR. [Interacting]
     Active Substance: TICAGRELOR
     Indication: VASODILATATION
  11. DIGOXIN. [Concomitant]
     Active Substance: DIGOXIN
     Indication: CARDIOVASCULAR DISORDER
     Dosage: 0.125 MG, 1X/DAY
  12. CORDARONE [Interacting]
     Active Substance: AMIODARONE HYDROCHLORIDE
     Dosage: 0.2 G, 2X/DAY
     Route: 048

REACTIONS (4)
  - Supraventricular tachycardia [Recovered/Resolved]
  - Electrocardiogram QT prolonged [Recovered/Resolved]
  - Drug interaction [Recovered/Resolved]
  - Torsade de pointes [Recovered/Resolved]
